FAERS Safety Report 9330737 (Version 1)
Quarter: 2013Q2

REPORT INFORMATION
  Report Type: Spontaneous
  Country: US (occurrence: None)
  Receive Date: 20130604
  Receipt Date: 20130604
  Transmission Date: 20140414
  Serious: Yes (Other)
  Sender: FDA-Public Use
  Company Number: None

PATIENT
  Age: 34 Year
  Sex: Female
  Weight: 87.5 kg

DRUGS (1)
  1. MARCAINE SPINAL [Suspect]
     Route: 038
     Dates: start: 20130603, end: 20130603

REACTIONS (1)
  - Therapeutic response delayed [None]
